FAERS Safety Report 10428495 (Version 2)
Quarter: 2015Q3

REPORT INFORMATION
  Report Type: Spontaneous
  Country: US (occurrence: US)
  Receive Date: 20140903
  Receipt Date: 20150818
  Transmission Date: 20151125
  Serious: No
  Sender: FDA-Public Use
  Company Number: US-GILEAD-2014-0113830

PATIENT
  Age: 71 Year
  Sex: Female

DRUGS (21)
  1. ABILIFY [Concomitant]
     Active Substance: ARIPIPRAZOLE
  2. LOPERAMIDE [Concomitant]
     Active Substance: LOPERAMIDE
  3. OXYBUTYNIN [Concomitant]
     Active Substance: OXYBUTYNIN
  4. COUMADIN [Concomitant]
     Active Substance: WARFARIN SODIUM
  5. XANAX [Concomitant]
     Active Substance: ALPRAZOLAM
  6. ALBUTEROL                          /00139501/ [Concomitant]
     Active Substance: ALBUTEROL
  7. ADVAIR HFA [Concomitant]
     Active Substance: FLUTICASONE PROPIONATE\SALMETEROL XINAFOATE
  8. OXYCONTIN [Concomitant]
     Active Substance: OXYCODONE HYDROCHLORIDE
  9. FUROSEMIDE. [Concomitant]
     Active Substance: FUROSEMIDE
  10. PERCOCET                           /00446701/ [Concomitant]
     Active Substance: ACETAMINOPHEN\OXYCODONE HYDROCHLORIDE\OXYCODONE TEREPHTHALATE
  11. LEXAPRO [Concomitant]
     Active Substance: ESCITALOPRAM OXALATE
  12. CYANOCOBALAMINE [Concomitant]
     Active Substance: CYANOCOBALAMIN
  13. ZOCOR [Concomitant]
     Active Substance: SIMVASTATIN
  14. COMBIVENT [Concomitant]
     Active Substance: ALBUTEROL SULFATE\IPRATROPIUM BROMIDE
  15. METFORMIN [Concomitant]
     Active Substance: METFORMIN HYDROCHLORIDE
  16. LETAIRIS [Suspect]
     Active Substance: AMBRISENTAN
     Indication: PULMONARY HYPERTENSION
     Dosage: 5 MG, QD
     Route: 065
     Dates: start: 20140429
  17. ONDANSETRON [Concomitant]
     Active Substance: ONDANSETRON
  18. COZAAR [Concomitant]
     Active Substance: LOSARTAN POTASSIUM
  19. DEXILANT [Concomitant]
     Active Substance: DEXLANSOPRAZOLE
  20. LEVSIN [Concomitant]
     Active Substance: HYOSCYAMINE SULFATE
  21. PENTASA [Concomitant]
     Active Substance: MESALAMINE

REACTIONS (1)
  - Flushing [Not Recovered/Not Resolved]

NARRATIVE: CASE EVENT DATE: 20140820
